FAERS Safety Report 4812646-7 (Version None)
Quarter: 2005Q4

REPORT INFORMATION
  Report Type: 
  Country: None (occurrence: None)
  Receive Date: 20051028
  Receipt Date: 20041103
  Transmission Date: 20060501
  Serious: No
  Sender: FDA-Public Use
  Company Number: US-GLAXOSMITHKLINE-A0532563A

PATIENT
  Sex: Female

DRUGS (6)
  1. ADVAIR DISKUS 100/50 [Suspect]
     Indication: CHRONIC OBSTRUCTIVE PULMONARY DISEASE
     Route: 055
  2. PROZAC [Concomitant]
  3. WELLBUTRIN [Concomitant]
  4. LITHIUM [Concomitant]
  5. LIPITOR [Concomitant]
  6. ESTROGEN [Concomitant]

REACTIONS (7)
  - DYSPHONIA [None]
  - HYPERHIDROSIS [None]
  - HYPOAESTHESIA [None]
  - IRRITABLE BOWEL SYNDROME [None]
  - NASAL CONGESTION [None]
  - SINUS DISORDER [None]
  - TREMOR [None]
